FAERS Safety Report 15415608 (Version 2)
Quarter: 2020Q1

REPORT INFORMATION
  Report Type: Report from Study
  Country: None (occurrence: CO)
  Receive Date: 20180922
  Receipt Date: 20200129
  Transmission Date: 20200409
  Serious: Yes (Other)
  Sender: FDA-Public Use
  Company Number: CO-ABBVIE-18K-036-2494995-00

PATIENT
  Sex: Female
  Weight: 70 kg

DRUGS (2)
  1. HUMIRA [Suspect]
     Active Substance: ADALIMUMAB
     Indication: ANKYLOSING SPONDYLITIS
     Route: 058
     Dates: end: 2018
  2. SULFASALAZINE. [Concomitant]
     Active Substance: SULFASALAZINE
     Indication: PRODUCT USED FOR UNKNOWN INDICATION

REACTIONS (6)
  - Loose tooth [Unknown]
  - Overweight [Recovering/Resolving]
  - Arthralgia [Not Recovered/Not Resolved]
  - Haematochezia [Recovering/Resolving]
  - Haemorrhoids [Recovering/Resolving]
  - Periodontitis [Recovering/Resolving]

NARRATIVE: CASE EVENT DATE: 2018
